FAERS Safety Report 8798444 (Version 2)
Quarter: 2012Q4

REPORT INFORMATION
  Report Type: 
  Country: US (occurrence: US)
  Receive Date: 20120920
  Receipt Date: 20121022
  Transmission Date: 20130627
  Serious: Yes (Death)
  Sender: FDA-Public Use
  Company Number: US-ROCHE-1104472

PATIENT
  Sex: Male

DRUGS (3)
  1. AVASTIN [Suspect]
     Indication: RENAL CANCER
     Route: 042
     Dates: start: 20071112, end: 20080212
  2. AVASTIN [Suspect]
     Indication: LUNG NEOPLASM MALIGNANT
  3. AVASTIN [Suspect]
     Indication: RENAL CANCER

REACTIONS (1)
  - Metastatic renal cell carcinoma [Fatal]
